FAERS Safety Report 9131837 (Version 1)
Quarter: 2013Q1

REPORT INFORMATION
  Report Type: Report from Study
  Country: US (occurrence: US)
  Receive Date: 20130301
  Receipt Date: 20130301
  Transmission Date: 20140127
  Serious: No
  Sender: FDA-Public Use
  Company Number: US-MYLANLABS-2012S1016877

PATIENT
  Age: 17 Year
  Sex: Male
  Weight: 113.4 kg

DRUGS (3)
  1. AMNESTEEM CAPSULES [Suspect]
     Indication: ACNE
     Route: 048
     Dates: start: 20120703, end: 20120807
  2. AMNESTEEM CAPSULES [Suspect]
     Indication: ACNE
     Route: 048
     Dates: start: 20120703, end: 20120807
  3. ALBUTEROL INHALER [Concomitant]
     Indication: ASTHMA
     Route: 055

REACTIONS (2)
  - Hepatic enzyme increased [Not Recovered/Not Resolved]
  - Blood triglycerides increased [Not Recovered/Not Resolved]
